FAERS Safety Report 20502454 (Version 2)
Quarter: 2022Q1

REPORT INFORMATION
  Report Type: Spontaneous
  Country: US (occurrence: US)
  Receive Date: 20220222
  Receipt Date: 20220325
  Transmission Date: 20220423
  Serious: Yes (Life-Threatening, Hospitalization)
  Sender: FDA-Public Use
  Company Number: US-FRESENIUS KABI-FK202201924

PATIENT
  Age: 70 Year
  Sex: Male
  Weight: 77.4 kg

DRUGS (5)
  1. FLUDARABINE [Suspect]
     Active Substance: FLUDARABINE PHOSPHATE
     Indication: Chronic lymphocytic leukaemia
     Route: 042
     Dates: start: 20211023, end: 20211025
  2. LISOCABTAGENE MARALEUCEL [Suspect]
     Active Substance: LISOCABTAGENE MARALEUCEL
     Indication: Chronic lymphocytic leukaemia
     Dosage: 100 X 10^6 CAR+T CELLS, SINGLE
     Route: 042
     Dates: start: 20211028, end: 20211028
  3. CYCLOPHOSPHAMIDE [Suspect]
     Active Substance: CYCLOPHOSPHAMIDE
     Indication: Chronic lymphocytic leukaemia
     Route: 042
     Dates: start: 20211023, end: 20211025
  4. VENETOCLAX [Suspect]
     Active Substance: VENETOCLAX
     Indication: Chronic lymphocytic leukaemia
     Dosage: DOSE LEVEL 1 (DL1; 50 MG ON DAYS 2-30, 100 MG ON DAYS 31-90)
     Route: 048
     Dates: start: 20210910, end: 2021
  5. VENETOCLAX [Suspect]
     Active Substance: VENETOCLAX
     Dosage: DOSE LEVEL 1 (DL1; 50 MG ON DAYS 2-30, 100 MG ON DAYS 31-90)
     Route: 048
     Dates: start: 20211029, end: 20220115

REACTIONS (3)
  - Encephalitis [Not Recovered/Not Resolved]
  - Inappropriate antidiuretic hormone secretion [Recovered/Resolved]
  - Respiratory failure [Not Recovered/Not Resolved]

NARRATIVE: CASE EVENT DATE: 20220116
